FAERS Safety Report 5585284-9 (Version None)
Quarter: 2008Q1

REPORT INFORMATION
  Report Type: 
  Country: None (occurrence: None)
  Receive Date: 20080104
  Receipt Date: 20080104
  Transmission Date: 20080703
  Serious: Yes (Hospitalization)
  Sender: FDA-Public Use
  Company Number: None

PATIENT
  Sex: Female
  Weight: 47.3 kg

DRUGS (8)
  1. FLUOROURACIL [Suspect]
     Dosage: 12180 MG
     Dates: end: 20071024
  2. TYLENOL [Concomitant]
  3. ASPIRIN [Concomitant]
  4. COMPAZINE [Concomitant]
  5. ZOFRAN [Concomitant]
  6. OXYCODONE [Concomitant]
  7. TYLENOL [Concomitant]
  8. CLEOCIN HYDROCHLORIDE [Concomitant]

REACTIONS (4)
  - AXILLARY VEIN THROMBOSIS [None]
  - DEEP VEIN THROMBOSIS [None]
  - JUGULAR VEIN THROMBOSIS [None]
  - SUBCLAVIAN VEIN THROMBOSIS [None]
